FAERS Safety Report 8661272 (Version 5)
Quarter: 2013Q4

REPORT INFORMATION
  Report Type: Spontaneous
  Country: TR (occurrence: TR)
  Receive Date: 20120626
  Receipt Date: 20131031
  Transmission Date: 20140711
  Serious: Yes (Hospitalization, Other)
  Sender: FDA-Public Use
  Company Number: TR-MSD-2012SP033117

PATIENT
  Age: 48 Year
  Sex: Male

DRUGS (3)
  1. VICTRELIS [Suspect]
     Indication: CHRONIC HEPATITIS C
     Dosage: 800 MG, TID
     Route: 048
     Dates: start: 20111006, end: 20120614
  2. PEG-INTRON [Concomitant]
     Dosage: UNK UNK, UNKNOWN
     Route: 065
     Dates: start: 20110906, end: 20120614
  3. REBETOL [Concomitant]
     Dosage: UNK UNK, UNKNOWN
     Route: 065
     Dates: start: 20110906, end: 20120614

REACTIONS (1)
  - Pancreatitis acute [Recovered/Resolved]
